FAERS Safety Report 5592256-7 (Version None)
Quarter: 2008Q1

REPORT INFORMATION
  Report Type: 
  Country: None (occurrence: None)
  Receive Date: 20080115
  Receipt Date: 20080109
  Transmission Date: 20080703
  Serious: Yes (Hospitalization)
  Sender: FDA-Public Use
  Company Number: US-GENENTECH-252429

PATIENT
  Sex: Female
  Weight: 87.528 kg

DRUGS (22)
  1. HERCEPTIN [Suspect]
     Indication: BREAST CANCER METASTATIC
     Dates: start: 20070801
  2. PROCRIT [Suspect]
     Indication: ANAEMIA
     Dosage: 120000 IU, Q3W
     Route: 058
     Dates: start: 20071024
  3. ABRAXANE [Concomitant]
     Indication: BREAST CANCER METASTATIC
     Dates: start: 20070801
  4. GEMCITABINE HCL [Concomitant]
     Indication: BREAST CANCER METASTATIC
  5. MAGNESIUM [Concomitant]
     Indication: HYPOMAGNESAEMIA
  6. GLUCOSE INJECTION [Concomitant]
     Indication: DRUG USE FOR UNKNOWN INDICATION
  7. POLYSACCHARIDE-IRON COMPLEX [Concomitant]
     Indication: DRUG USE FOR UNKNOWN INDICATION
     Dosage: 200 MG, QD
     Dates: start: 20070815
  8. NOVOLIN 50/50 [Concomitant]
     Indication: DRUG USE FOR UNKNOWN INDICATION
     Dosage: 70/30
     Route: 058
     Dates: start: 20061018
  9. ARIMIDEX [Concomitant]
     Indication: DRUG USE FOR UNKNOWN INDICATION
     Dosage: 1 MG, QD
     Dates: start: 20050301
  10. SPIRIVA [Concomitant]
     Indication: DRUG USE FOR UNKNOWN INDICATION
     Dosage: 1 UNK, PRN
     Dates: start: 20051101
  11. ZOMETA [Concomitant]
     Indication: DRUG USE FOR UNKNOWN INDICATION
     Dosage: 3 MG, UNK
     Route: 042
     Dates: start: 20060412
  12. ADVAIR DISKUS 100/50 [Concomitant]
     Indication: DRUG USE FOR UNKNOWN INDICATION
     Dosage: 2 PUFF, QD
     Dates: start: 20061101
  13. AMITRIPTYLINE HCL [Concomitant]
     Indication: DRUG USE FOR UNKNOWN INDICATION
     Dosage: 25 MG, QD
     Route: 048
     Dates: start: 20051101
  14. DUONEB [Concomitant]
     Indication: DRUG USE FOR UNKNOWN INDICATION
     Dosage: 2.5 MG, QID
     Dates: start: 20051001
  15. METFORMIN HCL [Concomitant]
     Indication: DRUG USE FOR UNKNOWN INDICATION
     Dosage: 500 MG, QD
     Dates: start: 20061001
  16. GLYBURIDE [Concomitant]
     Indication: DRUG USE FOR UNKNOWN INDICATION
     Dosage: 5 MG, BID
     Route: 048
     Dates: start: 20061001
  17. REMERON [Concomitant]
     Indication: DRUG USE FOR UNKNOWN INDICATION
     Dosage: 15 MG, QD
     Route: 048
     Dates: start: 20051101
  18. TOPROL-XL [Concomitant]
     Indication: DRUG USE FOR UNKNOWN INDICATION
     Dosage: 25 MG, QD
     Route: 048
     Dates: start: 19950101
  19. ATIVAN [Concomitant]
     Indication: DRUG USE FOR UNKNOWN INDICATION
     Dosage: 0.5 MG, QD
     Route: 048
     Dates: start: 20051001
  20. PROTONIX [Concomitant]
     Indication: DRUG USE FOR UNKNOWN INDICATION
     Dosage: 40 MG, QD
     Route: 048
     Dates: start: 20051101
  21. ANZEMET [Concomitant]
     Indication: DRUG USE FOR UNKNOWN INDICATION
     Dosage: 160 MG, PRN
     Route: 042
     Dates: start: 20070703
  22. GLUCAGON [Concomitant]
     Indication: DRUG USE FOR UNKNOWN INDICATION
     Dosage: 1 MG, PRN
     Route: 030
     Dates: start: 20061001

REACTIONS (1)
  - PNEUMONIA [None]
